FAERS Safety Report 13343974 (Version 1)
Quarter: 2017Q1

REPORT INFORMATION
  Report Type: Spontaneous
  Country: BR (occurrence: BR)
  Receive Date: 20170316
  Receipt Date: 20170316
  Transmission Date: 20170428
  Serious: Yes (Hospitalization, Other)
  Sender: FDA-Public Use
  Company Number: BR-BRISTOL-MYERS SQUIBB COMPANY-BMS-2017-021591

PATIENT
  Sex: Male

DRUGS (1)
  1. ELIQUIS [Suspect]
     Active Substance: APIXABAN
     Indication: PRODUCT USED FOR UNKNOWN INDICATION
     Dosage: 2.5 MG, UNK
     Route: 065
     Dates: start: 20160714

REACTIONS (10)
  - Incorrect dose administered [Unknown]
  - Nasal cavity packing [Unknown]
  - Renal disorder [Unknown]
  - Cardiac disorder [Not Recovered/Not Resolved]
  - Vein rupture [Unknown]
  - Transfusion [Unknown]
  - Cough [Unknown]
  - Haemorrhage [Unknown]
  - Cautery to nose [Unknown]
  - Lung disorder [Unknown]
